FAERS Safety Report 13363561 (Version 1)
Quarter: 2017Q1

REPORT INFORMATION
  Report Type: Spontaneous
  Country: FR (occurrence: FR)
  Receive Date: 20170323
  Receipt Date: 20170323
  Transmission Date: 20170429
  Serious: Yes (Hospitalization, Other)
  Sender: FDA-Public Use
  Company Number: FR-PFIZER INC-2017060102

PATIENT
  Age: 79 Year
  Sex: Male
  Weight: 83.4 kg

DRUGS (18)
  1. PIVALONE /00803802/ [Concomitant]
     Active Substance: TIXOCORTOL PIVALATE
     Dosage: UNK UNK, AS NEEDED
  2. TRIFLUCAN [Suspect]
     Active Substance: FLUCONAZOLE
     Indication: CANDIDA INFECTION
     Dosage: 40 MG, 2X/DAY, IN THE MORNING AND EVENING
     Route: 048
     Dates: start: 20170106, end: 20170123
  3. CEFTAZIDIME. [Concomitant]
     Active Substance: CEFTAZIDIME
     Dosage: 0.5 G, 1X/DAY
     Route: 042
     Dates: start: 201701, end: 20170118
  4. GUTRON [Concomitant]
     Active Substance: MIDODRINE
     Dosage: UP TO 1 TABLET THREE TIMES A DAY
  5. ZYVOXID [Suspect]
     Active Substance: LINEZOLID
     Dosage: 600 MG, 2X/DAY
     Route: 048
     Dates: start: 20170120, end: 20170123
  6. ZYVOXID [Suspect]
     Active Substance: LINEZOLID
     Dosage: 600 MG, 2X/DAY, MORNING AND EVENING
     Dates: start: 20170106
  7. LASILIX /00032601/ [Concomitant]
     Active Substance: FUROSEMIDE
     Dosage: 1 DF, 1X/DAY, IN THE MORNING
  8. COVERSYL /00790702/ [Concomitant]
     Active Substance: PERINDOPRIL
     Dosage: 2 MG, 1X/DAY
  9. LEVOTHYROX [Concomitant]
     Active Substance: LEVOTHYROXINE
     Dosage: 125 UG, 1X/DAY, IN THE MORNING
  10. CRESTOR [Concomitant]
     Active Substance: ROSUVASTATIN CALCIUM
     Dosage: 10 MG, 1X/DAY
  11. LANTUS [Concomitant]
     Active Substance: INSULIN GLARGINE
     Dosage: 10 IU, 1X/DAY, IN THE MORNING
  12. TRAMADOL. [Concomitant]
     Active Substance: TRAMADOL
     Indication: PAIN
     Dosage: 50 MG, 4X/DAY
  13. CORDARONE [Concomitant]
     Active Substance: AMIODARONE HYDROCHLORIDE
     Dosage: 200 MG, 1X/DAY, IN THE MORNING
  14. PREVISCAN /00261401/ [Concomitant]
     Active Substance: PENTOXIFYLLINE
     Dosage: 10 MG, 1X/DAY, HALF A TABLET IN THE EVENING
  15. PARACETAMOL [Concomitant]
     Active Substance: ACETAMINOPHEN
     Dosage: UNK UNK, AS NEEDED
  16. DEROXAT [Concomitant]
     Active Substance: PAROXETINE HYDROCHLORIDE
     Dosage: UNK
  17. IMOVANE [Concomitant]
     Active Substance: ZOPICLONE
     Dosage: 7.5 MG, 1X/DAY, AT BEDTIME
  18. CARDENSIEL [Concomitant]
     Active Substance: BISOPROLOL FUMARATE
     Dosage: 2.5 MG, 1X/DAY, IN THE MORNING

REACTIONS (3)
  - Thrombocytopenia [Recovered/Resolved]
  - Condition aggravated [Not Recovered/Not Resolved]
  - Anaemia [Not Recovered/Not Resolved]

NARRATIVE: CASE EVENT DATE: 20170123
